FAERS Safety Report 5472657-8 (Version None)
Quarter: 2007Q3

REPORT INFORMATION
  Report Type: 
  Country: None (occurrence: None)
  Receive Date: 20070926
  Receipt Date: 20070913
  Transmission Date: 20080115
  Serious: Yes (Hospitalization)
  Sender: FDA-Public Use
  Company Number: S07-SWI-05153-01

PATIENT
  Age: 80 Year
  Sex: Female

DRUGS (11)
  1. CITALOPRAM HYDROBROMIDE [Suspect]
     Dosage: 20 MG QD PO
     Route: 048
  2. MARCUMAR [Suspect]
     Indication: HEART VALVE REPLACEMENT
     Dosage: 3 MG QD PO
     Route: 048
     Dates: start: 20070615, end: 20070601
  3. FRAGMIN [Suspect]
     Dosage: 1000 QD SC
     Route: 058
     Dates: start: 20070601, end: 20070601
  4. OMEPRAZOLE [Concomitant]
  5. METOPROLOL SUCCINATE [Concomitant]
  6. COZAAR [Concomitant]
  7. SELIPRAN (PRAVASTATIN SODIUM) [Concomitant]
  8. ACETAMINOPHEN [Concomitant]
  9. CELEVREX (CELECOXIB) [Concomitant]
  10. NOVALGIN (METAMIZOLE SODIUM) [Concomitant]
  11. SERESTA (OZAZEPAM) [Concomitant]

REACTIONS (4)
  - MUSCLE HAEMORRHAGE [None]
  - POST PROCEDURAL HAEMATOMA [None]
  - PROTHROMBIN TIME ABNORMAL [None]
  - SPINAL HAEMATOMA [None]
